FAERS Safety Report 4587285-6 (Version None)
Quarter: 2005Q1

REPORT INFORMATION
  Report Type: 
  Country: None (occurrence: None)
  Receive Date: 20050215
  Receipt Date: 20050202
  Transmission Date: 20050727
  Serious: No
  Sender: FDA-Public Use
  Company Number: 2005GB00227

PATIENT
  Age: 70 Year
  Sex: Female

DRUGS (2)
  1. QUETIAPINE FUMARATE [Suspect]
     Dosage: 50 MG BID PO
     Route: 048
     Dates: start: 20041207, end: 20050112
  2. FYBOGEL [Concomitant]

REACTIONS (3)
  - CONVULSION [None]
  - FACE INJURY [None]
  - FALL [None]
